FAERS Safety Report 17110988 (Version 1)
Quarter: 2019Q4

REPORT INFORMATION
  Report Type: Spontaneous
  Country: CH (occurrence: CH)
  Receive Date: 20191204
  Receipt Date: 20191204
  Transmission Date: 20200122
  Serious: Yes (Life-Threatening, Hospitalization, Disabling)
  Sender: FDA-Public Use
  Company Number: NVSC2019CH055612

PATIENT
  Sex: Female

DRUGS (2)
  1. ZOLPIDEM [Suspect]
     Active Substance: ZOLPIDEM TARTRATE
     Indication: PRODUCT USED FOR UNKNOWN INDICATION
     Dosage: 7 DF (7 ZOLPIDEM TABLETS TAKEN AFTER CONFLICTS WITH FRIENDS WITH DESIRE FOR REST)
     Route: 048
     Dates: start: 20191025
  2. ESCITALOPRAM [Suspect]
     Active Substance: ESCITALOPRAM OXALATE
     Indication: PRODUCT USED FOR UNKNOWN INDICATION
     Dosage: 15 MG, QD (HALF TABLET IN THE MORNING)
     Route: 065

REACTIONS (2)
  - Suicide attempt [Recovering/Resolving]
  - Altered state of consciousness [Recovering/Resolving]
